FAERS Safety Report 11979911 (Version 1)
Quarter: 2016Q1

REPORT INFORMATION
  Report Type: Spontaneous
  Country: JP (occurrence: JP)
  Receive Date: 20160129
  Receipt Date: 20160129
  Transmission Date: 20160526
  Serious: Yes (Life-Threatening, Hospitalization)
  Sender: FDA-Public Use
  Company Number: JP-ASTRAZENECA-2016SE09853

PATIENT
  Age: 90 Year
  Sex: Male
  Weight: 50 kg

DRUGS (5)
  1. SOLITA [Concomitant]
     Route: 041
  2. LASIX [Concomitant]
     Active Substance: FUROSEMIDE
  3. ASPARA POTASSIUM [Concomitant]
     Active Substance: POTASSIUM ASPARTATE
  4. MEROPEN [Suspect]
     Active Substance: MEROPENEM
     Indication: PNEUMONIA
     Route: 041
     Dates: end: 20160119
  5. ALBUMIN [Concomitant]
     Active Substance: ALBUMIN (HUMAN)

REACTIONS (3)
  - Hepatitis fulminant [Recovered/Resolved]
  - Pulmonary sepsis [Unknown]
  - Multiple organ dysfunction syndrome [Unknown]

NARRATIVE: CASE EVENT DATE: 20160119
